FAERS Safety Report 24751376 (Version 2)
Quarter: 2025Q1

REPORT INFORMATION
  Report Type: Report from Study
  Country: BR (occurrence: BR)
  Receive Date: 20241219
  Receipt Date: 20250111
  Transmission Date: 20250409
  Serious: Yes (Other)
  Sender: CELLTRION
  Company Number: BR-CELLTRION INC.-2023BR004660

PATIENT

DRUGS (6)
  1. INFLIXIMAB-DYYB [Suspect]
     Active Substance: INFLIXIMAB-DYYB
     Indication: Ankylosing spondylitis
     Dosage: 2 AMPOULES EVERY 30 DAYS
     Route: 042
     Dates: start: 20221017, end: 20230116
  2. INFLIXIMAB-DYYB [Suspect]
     Active Substance: INFLIXIMAB-DYYB
     Dosage: 2 AMPOULES EVERY 30 DAYS
     Route: 042
     Dates: start: 202408
  3. INFLIXIMAB-DYYB [Suspect]
     Active Substance: INFLIXIMAB-DYYB
     Dosage: 2 AMPOULES EVERY 4 WEEKS
     Route: 042
     Dates: start: 20241210
  4. VITAMIN D NOS [Concomitant]
     Active Substance: CHOLECALCIFEROL\ERGOCALCIFEROL
     Indication: Product used for unknown indication
     Dosage: 1 PILLS OF 2000UL PER WEEK (START DATE: 1 YEAR)
     Route: 048
  5. SULFASALAZINE [Concomitant]
     Active Substance: SULFASALAZINE
     Indication: Product used for unknown indication
     Route: 048
     Dates: start: 2013
  6. LOSARTAN [Concomitant]
     Active Substance: LOSARTAN
     Indication: Product used for unknown indication
     Route: 048

REACTIONS (12)
  - Ankylosing spondylitis [Not Recovered/Not Resolved]
  - Eye swelling [Unknown]
  - Neck pain [Unknown]
  - Eye pain [Unknown]
  - Oropharyngeal pain [Unknown]
  - Fatigue [Unknown]
  - Pain [Not Recovered/Not Resolved]
  - Hypersensitivity [Recovering/Resolving]
  - Therapy interrupted [Unknown]
  - Therapeutic product effect delayed [Unknown]
  - Expired product administered [Unknown]
  - Product distribution issue [Unknown]
